FAERS Safety Report 6125133-3 (Version None)
Quarter: 2009Q1

REPORT INFORMATION
  Report Type: 
  Country: None (occurrence: None)
  Receive Date: 20090317
  Receipt Date: 20090309
  Transmission Date: 20090719
  Serious: Yes (Other)
  Sender: FDA-Public Use
  Company Number: FEI2009-0288

PATIENT
  Age: 29 Year
  Sex: Female
  Weight: 63.5036 kg

DRUGS (1)
  1. PARAGARD T 380A [Suspect]
     Indication: CONTRACEPTION
     Dosage: NA, INTRA-UTERINE
     Route: 015
     Dates: start: 20080529, end: 20090207

REACTIONS (5)
  - ACNE [None]
  - DEPRESSION [None]
  - MENORRHAGIA [None]
  - MOOD SWINGS [None]
  - SUICIDAL IDEATION [None]
